FAERS Safety Report 5255064-2 (Version None)
Quarter: 2007Q1

REPORT INFORMATION
  Report Type: 
  Country: None (occurrence: None)
  Receive Date: 20070305
  Receipt Date: 20070227
  Transmission Date: 20070707
  Serious: Yes (Other)
  Sender: FDA-Public Use
  Company Number: CA-BRISTOL-MYERS SQUIBB COMPANY-13693809

PATIENT
  Age: 17 Year
  Sex: Male

DRUGS (8)
  1. VINCRISTINE [Suspect]
     Indication: HODGKIN'S DISEASE STAGE IV
     Route: 042
  2. BLEOMYCIN SULFATE [Suspect]
     Indication: HODGKIN'S DISEASE STAGE IV
     Route: 042
  3. DOXORUBICIN HCL [Suspect]
     Indication: HODGKIN'S DISEASE STAGE IV
     Route: 042
  4. VINBLASTINE SULFATE [Suspect]
     Indication: HODGKIN'S DISEASE STAGE IV
     Route: 042
  5. MECHLORETHAMINE [Suspect]
     Indication: HODGKIN'S DISEASE STAGE IV
     Route: 042
  6. PROCARBAZINE [Suspect]
     Indication: HODGKIN'S DISEASE STAGE IV
     Route: 048
  7. PREDNISONE [Suspect]
     Indication: HODGKIN'S DISEASE STAGE IV
     Route: 048
  8. RADIATION THERAPY [Concomitant]
     Indication: HODGKIN'S DISEASE STAGE IV

REACTIONS (1)
  - UNDIFFERENTIATED SARCOMA [None]
